FAERS Safety Report 5231126-0 (Version None)
Quarter: 2007Q1

REPORT INFORMATION
  Report Type: 
  Country: None (occurrence: None)
  Receive Date: 20070206
  Receipt Date: 20070126
  Transmission Date: 20070707
  Serious: Yes (Other)
  Sender: FDA-Public Use
  Company Number: CA-ROCHE-480551

PATIENT
  Age: 33 Year
  Sex: Female

DRUGS (1)
  1. ACCUTANE [Suspect]
     Indication: ACNE
     Route: 048
     Dates: start: 20000615, end: 20000615

REACTIONS (3)
  - ARTHRALGIA [None]
  - COMPARTMENT SYNDROME [None]
  - MYALGIA [None]
